FAERS Safety Report 5648436-5 (Version None)
Quarter: 2008Q1

REPORT INFORMATION
  Report Type: 
  Country: None (occurrence: None)
  Receive Date: 20080303
  Receipt Date: 20080303
  Transmission Date: 20080703
  Serious: Yes (Other)
  Sender: FDA-Public Use
  Company Number: None

PATIENT
  Sex: Female
  Weight: 103.4201 kg

DRUGS (2)
  1. AVANDIA [Suspect]
     Indication: DIABETES MELLITUS
     Dosage: 1 TABLET ONCE A DAY PO
     Route: 048
     Dates: start: 20060527, end: 20061101
  2. AVANDIA [Suspect]
     Indication: DIABETES MELLITUS
     Dosage: 1 TABLET ONCE A DAY PO
     Route: 048

REACTIONS (4)
  - CELLULITIS [None]
  - DYSPNOEA [None]
  - OEDEMA [None]
  - RENAL FAILURE CHRONIC [None]
